FAERS Safety Report 9663711 (Version 1)
Quarter: 2013Q4

REPORT INFORMATION
  Report Type: Spontaneous
  Country: US (occurrence: US)
  Receive Date: 20131101
  Receipt Date: 20131101
  Transmission Date: 20140711
  Serious: Yes (Other)
  Sender: FDA-Public Use
  Company Number: PHEH2013US022328

PATIENT
  Sex: Female

DRUGS (6)
  1. ARCAPTA [Suspect]
     Dosage: 75 UG, UNK
  2. SYMBICORT [Suspect]
  3. SYNTHROID [Concomitant]
  4. ZESTORETIC [Concomitant]
     Dosage: 20 TO 25 MG PERDAY
  5. ZANTAC [Concomitant]
     Dosage: 150 MG, UNK
  6. ALBUTEROL [Concomitant]

REACTIONS (18)
  - Asthma [Unknown]
  - Hypersensitivity [Unknown]
  - Pharyngeal oedema [Unknown]
  - Oedema mouth [Unknown]
  - Swollen tongue [Unknown]
  - Dyspnoea [Unknown]
  - Tremor [Unknown]
  - Glossodynia [Unknown]
  - Paraesthesia [Unknown]
  - Tongue disorder [Unknown]
  - Asthenia [Unknown]
  - Insomnia [Unknown]
  - Feeling abnormal [Unknown]
  - Fatigue [Unknown]
  - Pain [Unknown]
  - Gait disturbance [Unknown]
  - Joint stiffness [Unknown]
  - Pain in extremity [Not Recovered/Not Resolved]
